FAERS Safety Report 8203565-7 (Version None)
Quarter: 2012Q1

REPORT INFORMATION
  Report Type: 
  Country: None (occurrence: None)
  Receive Date: 20120313
  Receipt Date: 20120307
  Transmission Date: 20120608
  Serious: No
  Sender: FDA-Public Use
  Company Number: US-BIOGENIDEC-2012BI008376

PATIENT
  Age: 39 Year
  Sex: Female

DRUGS (1)
  1. TYSABRI [Suspect]
     Indication: MULTIPLE SCLEROSIS
     Route: 042
     Dates: start: 20111121

REACTIONS (6)
  - ULCER [None]
  - OROPHARYNGEAL PAIN [None]
  - HEADACHE [None]
  - RHINORRHOEA [None]
  - DIZZINESS [None]
  - DYSPEPSIA [None]
